FAERS Safety Report 4345010-8 (Version None)
Quarter: 2004Q2

REPORT INFORMATION
  Report Type: 
  Country: None (occurrence: None)
  Receive Date: 20040422
  Receipt Date: 20040422
  Transmission Date: 20050107
  Serious: Yes (Hospitalization)
  Sender: FDA-Public Use
  Company Number: None

PATIENT
  Age: 21 Year
  Sex: Female
  Weight: 54.4316 kg

DRUGS (8)
  1. PROCRIT [Suspect]
     Indication: ANAEMIA
     Dosage: 40,000 UNITS SC
     Route: 058
     Dates: start: 20040329
  2. PROCRIT [Suspect]
     Indication: ANAEMIA
     Dosage: 40,000 UNITS SC
     Route: 058
     Dates: start: 20040405
  3. ALEESE [Concomitant]
  4. ZOFRAN [Concomitant]
  5. THREE RIVERS RIBAVIRIN [Concomitant]
  6. INTERFERON ALFA CON [Concomitant]
  7. ZOLOFT [Concomitant]
  8. AMBIEN [Concomitant]

REACTIONS (2)
  - BLOOD POTASSIUM DECREASED [None]
  - CONVULSION [None]
